FAERS Safety Report 13438019 (Version 1)
Quarter: 2017Q2

REPORT INFORMATION
  Report Type: Spontaneous
  Country: US (occurrence: US)
  Receive Date: 20170412
  Receipt Date: 20170412
  Transmission Date: 20170830
  Serious: No
  Sender: FDA-Public Use
  Company Number: US-SA-2016SA089700

PATIENT
  Age: 51 Year
  Sex: Male

DRUGS (2)
  1. ALLEGRA [Suspect]
     Active Substance: FEXOFENADINE HYDROCHLORIDE
     Indication: SINUS DISORDER
     Dosage: START DATE: 12 DAYS AGO?STOP DATE: 1 DAY AGO
     Route: 065
  2. ALLEGRA [Suspect]
     Active Substance: FEXOFENADINE HYDROCHLORIDE
     Indication: RHINORRHOEA
     Dosage: START DATE: 12 DAYS AGO?STOP DATE: 1 DAY AGO
     Route: 065

REACTIONS (1)
  - Drug ineffective [Unknown]
